FAERS Safety Report 4478707-X (Version None)
Quarter: 2004Q3

REPORT INFORMATION
  Report Type: 
  Country: None (occurrence: None)
  Receive Date: 20040923
  Receipt Date: 20040707
  Transmission Date: 20050211
  Serious: No
  Sender: FDA-Public Use
  Company Number: USA040568405

PATIENT
  Age: 72 Year
  Sex: Female
  Weight: 48 kg

DRUGS (4)
  1. FORTEO [Suspect]
     Indication: OSTEOPOROSIS
     Dosage: 20 UG/1 DAY
     Dates: start: 20040518
  2. PREMARIN [Concomitant]
  3. AMBIEN [Concomitant]
  4. DOMPERIDONE [Concomitant]

REACTIONS (7)
  - CATARACT [None]
  - DIZZINESS [None]
  - EYE DISORDER [None]
  - EYE PAIN [None]
  - PALPITATIONS [None]
  - VISUAL ACUITY REDUCED [None]
  - VISUAL DISTURBANCE [None]
